FAERS Safety Report 8681700 (Version 3)
Quarter: 2012Q4

REPORT INFORMATION
  Report Type: 
  Country: JP (occurrence: JP)
  Receive Date: 20120725
  Receipt Date: 20120927
  Transmission Date: 20130627
  Serious: Yes (Hospitalization)
  Sender: FDA-Public Use
  Company Number: JP-ELI_LILLY_AND_COMPANY-JP201207004835

PATIENT
  Age: 75 Year
  Sex: Female

DRUGS (2)
  1. FORTEO [Suspect]
     Dosage: UNK
     Route: 058
     Dates: start: 20120427, end: 201207
  2. FORTEO [Suspect]
     Dosage: UNK
     Route: 058
     Dates: start: 201207

REACTIONS (4)
  - Cerebral infarction [Recovering/Resolving]
  - Oral discomfort [Recovering/Resolving]
  - Salivary hypersecretion [Recovering/Resolving]
  - Medication error [Recovered/Resolved]
